FAERS Safety Report 11051070 (Version 3)
Quarter: 2015Q2

REPORT INFORMATION
  Report Type: Spontaneous
  Country: US (occurrence: US)
  Receive Date: 20150421
  Receipt Date: 20150423
  Transmission Date: 20150821
  Serious: Yes (Other)
  Sender: FDA-Public Use
  Company Number: US-ROCHE-1565128

PATIENT
  Sex: Male

DRUGS (3)
  1. PEGASYS [Suspect]
     Active Substance: PEGINTERFERON ALFA-2A
     Indication: PRODUCT USED FOR UNKNOWN INDICATION
     Route: 065
  2. ROFERON-A [Suspect]
     Active Substance: INTERFERON ALFA-2A
     Indication: AGE-RELATED MACULAR DEGENERATION
     Route: 058
     Dates: start: 1992
  3. LUCENTIS [Suspect]
     Active Substance: RANIBIZUMAB
     Indication: AGE-RELATED MACULAR DEGENERATION
     Route: 065

REACTIONS (4)
  - Eye haemorrhage [Recovered/Resolved]
  - Visual acuity reduced [Unknown]
  - Drug ineffective [Unknown]
  - Blindness unilateral [Unknown]

NARRATIVE: CASE EVENT DATE: 1993
